FAERS Safety Report 9515986 (Version 1)
Quarter: 2013Q1

REPORT INFORMATION
  Report Type: Spontaneous
  Country: US (occurrence: None)
  Receive Date: 20130305
  Receipt Date: 20130305
  Transmission Date: 20140127
  Serious: Yes (Other)
  Sender: FDA-Public Use
  Company Number: 163-21880-12120216

PATIENT
  Age: 71 Year
  Sex: Female

DRUGS (1)
  1. REVLIMID (LENALIDOMIDE) (25 MILLIGRAM, CAPSULES) [Suspect]
     Indication: PRURITUS
     Dosage: 25 MG, 1 IN 1 D, PO
     Route: 048
     Dates: start: 200809

REACTIONS (1)
  - Dysphonia [None]
